FAERS Safety Report 14222667 (Version 1)
Quarter: 2017Q4

REPORT INFORMATION
  Report Type: Report from Study
  Country: ES (occurrence: ES)
  Receive Date: 20171125
  Receipt Date: 20171125
  Transmission Date: 20180321
  Serious: Yes (Hospitalization, Other)
  Sender: FDA-Public Use
  Company Number: ES-MYLANLABS-2017M1073948

PATIENT
  Age: 62 Year
  Sex: Male
  Weight: 110 kg

DRUGS (7)
  1. ACETYLSALICYLIC ACID [Suspect]
     Active Substance: ASPIRIN
     Indication: PROPHYLAXIS
     Dosage: 1 DF, QD
     Dates: start: 201601, end: 201604
  2. FUROSEMIDE. [Suspect]
     Active Substance: FUROSEMIDE
     Indication: HYPERTENSION
     Dosage: 1 DF, BID
     Dates: start: 201601
  3. HYDROCHLOROTHIAZIDE/LOSARTAN [Suspect]
     Active Substance: HYDROCHLOROTHIAZIDE\LOSARTAN
     Indication: HYPERTENSION
     Dosage: 1 DF, QD
     Dates: start: 201601
  4. GLICLAZIDE [Suspect]
     Active Substance: GLICLAZIDE
     Indication: TYPE 2 DIABETES MELLITUS
     Dosage: 1 DF, QD
     Dates: start: 201601, end: 201706
  5. OMEPRAZOLE. [Suspect]
     Active Substance: OMEPRAZOLE
     Indication: PRODUCT USED FOR UNKNOWN INDICATION
     Dosage: 1 DF, QD
     Dates: start: 201701
  6. FLUOXETINE [Suspect]
     Active Substance: FLUOXETINE HYDROCHLORIDE
     Indication: DEPRESSION
     Dosage: 1 DF, QD
     Dates: start: 201701
  7. DOXAZOSIN [Suspect]
     Active Substance: DOXAZOSIN\DOXAZOSIN MESYLATE
     Indication: BENIGN PROSTATIC HYPERPLASIA
     Dosage: 1 DF, QD
     Dates: start: 201601, end: 20160913

REACTIONS (10)
  - Fatigue [Unknown]
  - Asphyxia [Unknown]
  - Atrial fibrillation [Unknown]
  - Condition aggravated [Unknown]
  - Cardiac failure [Unknown]
  - Treatment noncompliance [Recovered/Resolved]
  - Hypertension [Recovered/Resolved]
  - Diabetes mellitus inadequate control [Recovered/Resolved]
  - Oedema peripheral [Recovered/Resolved]
  - Urinary tract discomfort [Unknown]

NARRATIVE: CASE EVENT DATE: 20160405
